FAERS Safety Report 23737214 (Version 4)
Quarter: 2024Q4

REPORT INFORMATION
  Report Type: Spontaneous
  Country: JP (occurrence: JP)
  Receive Date: 20240412
  Receipt Date: 20241220
  Transmission Date: 20250114
  Serious: Yes (Hospitalization)
  Sender: AKEBIA THERAPEUTICS
  Company Number: JP-JT-JT2023JP000095AA

PATIENT
  Age: 83 Year
  Sex: Male
  Weight: 66 kg

DRUGS (44)
  1. FERRIC CITRATE ANHYDROUS [Suspect]
     Active Substance: FERRIC CITRATE ANHYDROUS
     Indication: Nephrogenic anaemia
     Dosage: 250 MILLIGRAM, BID
     Route: 048
     Dates: start: 20230920
  2. FERRIC CITRATE ANHYDROUS [Suspect]
     Active Substance: FERRIC CITRATE ANHYDROUS
     Indication: Iron deficiency anaemia
  3. ENARODUSTAT [Suspect]
     Active Substance: ENARODUSTAT
     Indication: Nephrogenic anaemia
     Dosage: 2 MILLIGRAM, QD
     Route: 048
     Dates: start: 20221226, end: 20230322
  4. ENARODUSTAT [Suspect]
     Active Substance: ENARODUSTAT
     Dosage: 4 MILLIGRAM, QD
     Route: 048
     Dates: start: 20230323, end: 20231203
  5. AMLODIPINE [Concomitant]
     Active Substance: AMLODIPINE BESYLATE
     Indication: Hypertension
     Dosage: 5 MILLIGRAM, QD
     Route: 048
     Dates: start: 20221226, end: 20230329
  6. AMLODIPINE [Concomitant]
     Active Substance: AMLODIPINE BESYLATE
     Dosage: 10 MILLIGRAM, QD
     Route: 048
     Dates: start: 20230330, end: 20230615
  7. AMLODIPINE [Concomitant]
     Active Substance: AMLODIPINE BESYLATE
     Dosage: 5 MILLIGRAM, QD
     Route: 048
     Dates: start: 20230616, end: 20230622
  8. AMLODIPINE [Concomitant]
     Active Substance: AMLODIPINE BESYLATE
     Dosage: 2.5 MILLIGRAM, QD
     Route: 048
     Dates: start: 20230623, end: 20231114
  9. NICARDIPINE HYDROCHLORIDE [Concomitant]
     Active Substance: NICARDIPINE HYDROCHLORIDE
     Indication: Prophylaxis
     Dosage: 10 MILLIGRAM, AS NEEDED
     Route: 042
     Dates: start: 20230226, end: 20230317
  10. MIYA-BM [Concomitant]
     Active Substance: CLOSTRIDIUM BUTYRICUM SPORES STRAIN M-55
     Indication: Prophylaxis
     Dosage: 1 GRAM, BID
     Route: 048
     Dates: start: 20230228, end: 20230420
  11. HUMULIN R [Concomitant]
     Active Substance: INSULIN HUMAN
     Indication: Diabetes mellitus
     Dosage: 100 UNIT, QD
     Route: 058
     Dates: start: 20230228, end: 20230313
  12. NIFEDIPINE [Concomitant]
     Active Substance: NIFEDIPINE
     Indication: Diabetic nephropathy
     Dosage: 20 MILLIGRAM, QD
     Route: 048
     Dates: start: 20230302, end: 20230313
  13. NIFEDIPINE [Concomitant]
     Active Substance: NIFEDIPINE
     Indication: Hypertension
  14. VONOPRAZAN FUMARATE [Concomitant]
     Active Substance: VONOPRAZAN FUMARATE
     Indication: Prophylaxis
     Dosage: 10 MILLIGRAM, QD
     Route: 048
     Dates: start: 20230302
  15. TRICHLORMETHIAZIDE [Concomitant]
     Active Substance: TRICHLORMETHIAZIDE
     Indication: Diabetic nephropathy
     Dosage: 2 MILLIGRAM, QD
     Route: 048
     Dates: start: 20230307, end: 20230320
  16. TRICHLORMETHIAZIDE [Concomitant]
     Active Substance: TRICHLORMETHIAZIDE
     Indication: Hypertension
  17. LINAGLIPTIN [Concomitant]
     Active Substance: LINAGLIPTIN
     Indication: Diabetes mellitus
     Dosage: 5 MILLIGRAM, QD
     Route: 048
     Dates: start: 20230314
  18. ATORVASTATIN CALCIUM TRIHYDRATE [Concomitant]
     Active Substance: ATORVASTATIN CALCIUM TRIHYDRATE
     Indication: Hyperlipidaemia
     Dosage: 10 MILLIGRAM, QD
     Route: 048
     Dates: start: 20230316
  19. ATORVASTATIN CALCIUM TRIHYDRATE [Concomitant]
     Active Substance: ATORVASTATIN CALCIUM TRIHYDRATE
     Indication: Prophylaxis
  20. REPAGLINIDE [Concomitant]
     Active Substance: DULOXETINE HYDROCHLORIDE\REPAGLINIDE\TICAGRELOR
     Indication: Diabetes mellitus
     Dosage: 0.5 MILLIGRAM, TID
     Route: 048
     Dates: start: 20230317, end: 20230321
  21. REPAGLINIDE [Concomitant]
     Active Substance: DULOXETINE HYDROCHLORIDE\REPAGLINIDE\TICAGRELOR
     Dosage: 0.5 MILLIGRAM, QD
     Route: 048
     Dates: start: 20230322
  22. REPAGLINIDE [Concomitant]
     Active Substance: DULOXETINE HYDROCHLORIDE\REPAGLINIDE\TICAGRELOR
     Dosage: 0.25 MILLIGRAM, BID
     Route: 048
     Dates: start: 20230802
  23. ASPIRIN [Concomitant]
     Active Substance: ASPIRIN
     Indication: Peripheral artery aneurysm
     Dosage: 100 MILLIGRAM, QD
     Route: 048
     Dates: start: 20230413
  24. ASPIRIN [Concomitant]
     Active Substance: ASPIRIN
     Indication: Thrombosis prophylaxis
  25. FUROSEMIDE [Concomitant]
     Active Substance: FUROSEMIDE
     Indication: Oedema peripheral
     Dosage: 10 MILLIGRAM, QD
     Route: 048
     Dates: start: 20230510, end: 20230711
  26. FUROSEMIDE [Concomitant]
     Active Substance: FUROSEMIDE
     Indication: Cardiomegaly
     Dosage: 40 MILLIGRAM, QD
     Route: 048
     Dates: start: 20230712, end: 20231203
  27. CEFTRIAXONE [Concomitant]
     Active Substance: CEFTRIAXONE
     Indication: Pyelonephritis acute
     Dosage: 1 GRAM, QD
     Route: 042
     Dates: start: 20230614, end: 20230619
  28. SODIUM BICARBONATE [Concomitant]
     Active Substance: SODIUM BICARBONATE
     Indication: Diabetic nephropathy
     Dosage: 1 GRAM, QD
     Route: 048
     Dates: start: 20230616, end: 20231203
  29. SODIUM BICARBONATE [Concomitant]
     Active Substance: SODIUM BICARBONATE
     Indication: Blood bicarbonate decreased
  30. CEFAZOLIN SODIUM [Concomitant]
     Active Substance: CEFAZOLIN SODIUM
     Indication: Pyelonephritis acute
     Dosage: 1 GRAM, QD
     Route: 042
     Dates: start: 20230620, end: 20230629
  31. BIO-THREE [Concomitant]
     Active Substance: HERBALS
     Indication: Enterocolitis
     Dosage: 1 DOSAGE FORM, TID
     Route: 048
     Dates: start: 20230629, end: 20230919
  32. BIO-THREE [Concomitant]
     Active Substance: HERBALS
     Dosage: 2 DOSAGE FORM, TID
     Route: 048
     Dates: start: 20230920
  33. CEFACLOR [Concomitant]
     Active Substance: CEFACLOR
     Indication: Enterocolitis
     Dosage: 250 MILLIGRAM, BID
     Route: 048
     Dates: start: 20230629, end: 20230712
  34. CEFACLOR [Concomitant]
     Active Substance: CEFACLOR
     Indication: Prophylaxis
     Dosage: 250 MILLIGRAM, TID
     Route: 048
     Dates: start: 20230802, end: 20230804
  35. VOGLIBOSE [Concomitant]
     Active Substance: VOGLIBOSE
     Indication: Diabetes mellitus
     Dosage: 0.2 MILLIGRAM, TID
     Route: 048
     Dates: start: 20230712, end: 20230801
  36. VOGLIBOSE [Concomitant]
     Active Substance: VOGLIBOSE
     Indication: Diabetes mellitus
     Dosage: 0.2 MILLIGRAM, BID
     Route: 048
     Dates: start: 20230802, end: 20230822
  37. TAMSULOSIN HYDROCHLORIDE [Concomitant]
     Active Substance: TAMSULOSIN HYDROCHLORIDE
     Indication: Benign prostatic hyperplasia
     Dosage: 0.2 MILLIGRAM, QD
     Route: 048
     Dates: start: 20230809
  38. DUTASTERIDE [Concomitant]
     Active Substance: DUTASTERIDE
     Indication: Benign prostatic hyperplasia
     Dosage: 0.5 MILLIGRAM, QD
     Route: 048
     Dates: start: 20230906
  39. PIPERACILLIN SODIUM\TAZOBACTAM SODIUM [Concomitant]
     Active Substance: PIPERACILLIN SODIUM\TAZOBACTAM SODIUM
     Indication: Pneumonia
     Dosage: 2.25 GRAM, TID
     Route: 042
     Dates: start: 20230226, end: 20230315
  40. LOKELMA [Concomitant]
     Active Substance: SODIUM ZIRCONIUM CYCLOSILICATE
     Indication: Hyperkalaemia
     Dosage: 5 GRAM, QD
     Route: 048
     Dates: start: 20230615, end: 20230619
  41. AMOXICILLIN [Concomitant]
     Active Substance: AMOXICILLIN
     Indication: Cystitis
     Dosage: 250 MILLIGRAM, BID
     Route: 048
     Dates: start: 20230915, end: 20230920
  42. AMOXICILLIN [Concomitant]
     Active Substance: AMOXICILLIN
     Indication: Prophylaxis
     Dosage: 250 MILLIGRAM, BID
     Route: 048
     Dates: start: 20231011, end: 20231017
  43. CEFCAPENE PIVOXIL HYDROCHLORIDE HYDRATE [Concomitant]
     Active Substance: CEFCAPENE PIVOXIL HYDROCHLORIDE HYDRATE
     Indication: Urinary tract infection
     Dosage: 100 MILLIGRAM, TID
     Route: 048
     Dates: start: 20230809, end: 20230813
  44. PL [Concomitant]
     Active Substance: ACETAMINOPHEN\CAFFEINE\PROMETHAZINE\SALICYLAMIDE
     Indication: Nasopharyngitis
     Dosage: 1 GRAM, BID
     Route: 048
     Dates: start: 20231129, end: 20231201

REACTIONS (20)
  - Acute kidney injury [Not Recovered/Not Resolved]
  - Pneumonia [Recovering/Resolving]
  - Chronic kidney disease [Recovering/Resolving]
  - Pyelonephritis acute [Recovered/Resolved]
  - Nasopharyngitis [Recovered/Resolved]
  - Urinary tract infection [Recovering/Resolving]
  - Hypokalaemia [Recovered/Resolved]
  - Peripheral artery aneurysm [Not Recovered/Not Resolved]
  - Cardiomegaly [Recovering/Resolving]
  - Blood bicarbonate decreased [Not Recovered/Not Resolved]
  - Enterocolitis [Not Recovered/Not Resolved]
  - Diabetes mellitus [Recovering/Resolving]
  - Haematuria [Not Recovered/Not Resolved]
  - Benign prostatic hyperplasia [Not Recovered/Not Resolved]
  - Cystitis [Recovered/Resolved]
  - Cystitis [Recovered/Resolved]
  - Iron deficiency anaemia [Not Recovered/Not Resolved]
  - Hypertension [Recovering/Resolving]
  - Oedema peripheral [Recovering/Resolving]
  - Hyperkalaemia [Recovered/Resolved]

NARRATIVE: CASE EVENT DATE: 20230225
